FAERS Safety Report 21137016 (Version 1)
Quarter: 2022Q3

REPORT INFORMATION
  Report Type: Spontaneous
  Country: US (occurrence: None)
  Receive Date: 20220726
  Receipt Date: 20220726
  Transmission Date: 20221027
  Serious: Yes (unspecified)
  Sender: FDA-Public Use
  Company Number: None

PATIENT
  Sex: Female
  Weight: 72.57 kg

DRUGS (3)
  1. MIRENA [Suspect]
     Active Substance: LEVONORGESTREL
     Indication: Product used for unknown indication
  2. ADDERALL [Concomitant]
     Active Substance: AMPHETAMINE ASPARTATE\AMPHETAMINE SULFATE\DEXTROAMPHETAMINE SACCHARATE\DEXTROAMPHETAMINE SULFATE
  3. LAMOTRIGINE [Concomitant]
     Active Substance: LAMOTRIGINE

REACTIONS (10)
  - Pain [None]
  - Vomiting [None]
  - Device dislocation [None]
  - Complication of device removal [None]
  - Procedural pain [None]
  - Muscle spasms [None]
  - Complication associated with device [None]
  - Device defective [None]
  - Emotional distress [None]
  - Device physical property issue [None]

NARRATIVE: CASE EVENT DATE: 20220502
